FAERS Safety Report 6266775-4 (Version None)
Quarter: 2009Q3

REPORT INFORMATION
  Report Type: 
  Country: None (occurrence: None)
  Receive Date: 20090709
  Receipt Date: 20090709
  Transmission Date: 20100115
  Serious: No
  Sender: FDA-Public Use
  Company Number: None

PATIENT
  Age: 57 Year
  Sex: Male

DRUGS (1)
  1. VENOFER [Suspect]
     Indication: ANAEMIA
     Dosage: 200 MG
     Dates: start: 20090218, end: 20090319

REACTIONS (2)
  - CATHETER SITE DISCHARGE [None]
  - CATHETER SITE SWELLING [None]
